FAERS Safety Report 6813324-5 (Version None)
Quarter: 2010Q2

REPORT INFORMATION
  Report Type: 
  Country: None (occurrence: None)
  Receive Date: 20100628
  Receipt Date: 20100621
  Transmission Date: 20101027
  Serious: Yes (Hospitalization)
  Sender: FDA-Public Use
  Company Number: 1000014698

PATIENT
  Age: 56 Year
  Sex: Male

DRUGS (5)
  1. LEXAPRO [Suspect]
     Indication: ANXIETY
     Dosage: 10 MG (10 MG, 1 IN 1 D), ORAL
     Route: 048
     Dates: start: 20100518, end: 20100520
  2. LEXAPRO [Suspect]
     Indication: DEPRESSION
     Dosage: 10 MG (10 MG, 1 IN 1 D), ORAL
     Route: 048
     Dates: start: 20100518, end: 20100520
  3. LEXAPRO [Suspect]
     Indication: INSOMNIA
     Dosage: 10 MG (10 MG, 1 IN 1 D), ORAL
     Route: 048
     Dates: start: 20100518, end: 20100520
  4. ATIVAN [Concomitant]
  5. AMLODIPINE [Concomitant]

REACTIONS (2)
  - LACERATION [None]
  - LOSS OF CONSCIOUSNESS [None]
